FAERS Safety Report 24566232 (Version 1)
Quarter: 2024Q4

REPORT INFORMATION
  Report Type: Spontaneous
  Country: US (occurrence: None)
  Receive Date: 20241029
  Receipt Date: 20241029
  Transmission Date: 20250114
  Serious: Yes (Hospitalization)
  Sender: Public
  Company Number: None

PATIENT
  Age: 35 Year
  Sex: Female

DRUGS (2)
  1. LABETALOL HYDROCHLORIDE [Suspect]
     Active Substance: LABETALOL HYDROCHLORIDE
     Indication: Hypertension
  2. PYRIDOSTIGMINE [Suspect]
     Active Substance: PYRIDOSTIGMINE

REACTIONS (5)
  - Myasthenia gravis crisis [None]
  - Nervous system disorder [None]
  - Muscle disorder [None]
  - Hereditary disorder [None]
  - Candida infection [None]

NARRATIVE: CASE EVENT DATE: 20240805
